FAERS Safety Report 17760022 (Version 1)
Quarter: 2020Q2

REPORT INFORMATION
  Report Type: Spontaneous
  Country: US (occurrence: US)
  Receive Date: 20200507
  Receipt Date: 20200507
  Transmission Date: 20200714
  Serious: No
  Sender: FDA-Public Use
  Company Number: None

PATIENT
  Age: 44 Year
  Sex: Female
  Weight: 67.5 kg

DRUGS (1)
  1. PRASCO ETONOGESTREL/ETHINYL ESTRADIOL VAGINAL RING [Suspect]
     Active Substance: ETHINYL ESTRADIOL\ETONOGESTREL
     Indication: CONTRACEPTION
     Dosage: ?          QUANTITY:1 RING;OTHER FREQUENCY:CONSISTENT 3 WEEKS;?
     Route: 067
     Dates: start: 20200112, end: 20200310

REACTIONS (10)
  - Constipation [None]
  - Product substitution issue [None]
  - Menstruation delayed [None]
  - Miliaria [None]
  - Palpitations [None]
  - Nausea [None]
  - Metrorrhagia [None]
  - Chest discomfort [None]
  - Cardiac flutter [None]
  - Hot flush [None]

NARRATIVE: CASE EVENT DATE: 20200122
